FAERS Safety Report 4401072-0 (Version None)
Quarter: 2004Q3

REPORT INFORMATION
  Report Type: 
  Country: None (occurrence: None)
  Receive Date: 20040907
  Receipt Date: 20031015
  Transmission Date: 20050211
  Serious: No
  Sender: FDA-Public Use
  Company Number: US-BRISTOL-MYERS SQUIBB COMPANY-12412276

PATIENT
  Age: 80 Year
  Sex: Male

DRUGS (8)
  1. COUMADIN [Suspect]
     Indication: CARDIAC PACEMAKER INSERTION
     Route: 048
     Dates: start: 20020101
  2. WARFARIN SODIUM [Suspect]
     Indication: CARDIAC PACEMAKER INSERTION
     Route: 048
     Dates: start: 20020101
  3. SYNTHROID [Concomitant]
  4. ZOCOR [Concomitant]
  5. NADOLOL [Concomitant]
  6. FLOMAX [Concomitant]
  7. FAMOTIDINE [Concomitant]
  8. ASPIRIN [Concomitant]

REACTIONS (2)
  - DRY MOUTH [None]
  - PROTHROMBIN TIME ABNORMAL [None]
